FAERS Safety Report 23515629 (Version 1)
Quarter: 2024Q1

REPORT INFORMATION
  Report Type: Report from Study
  Country: US (occurrence: US)
  Receive Date: 20240213
  Receipt Date: 20240213
  Transmission Date: 20240410
  Serious: Yes (Other)
  Sender: FDA-Public Use
  Company Number: US-002147023-NVSC2024US029877

PATIENT
  Sex: Male

DRUGS (2)
  1. PROMACTA [Suspect]
     Active Substance: ELTROMBOPAG OLAMINE
     Indication: Platelet count abnormal
     Dosage: 50 MG, QD
     Route: 048
     Dates: start: 20231229
  2. PROMACTA [Suspect]
     Active Substance: ELTROMBOPAG OLAMINE
     Dosage: 100 MG, QD (2 X 50 MG TABLETS PER DAY)
     Route: 048

REACTIONS (1)
  - Platelet count decreased [Recovering/Resolving]
